FAERS Safety Report 18417161 (Version 1)
Quarter: 2020Q4

REPORT INFORMATION
  Report Type: Spontaneous
  Country: US (occurrence: US)
  Receive Date: 20201022
  Receipt Date: 20201022
  Transmission Date: 20210114
  Serious: Yes (Death, Other)
  Sender: FDA-Public Use
  Company Number: US-PURDUE-USA-2020-0170522

PATIENT
  Age: 28 Year
  Sex: Male

DRUGS (1)
  1. MORPHINE SULFATE (SIMILAR TO NDA 19-516) [Suspect]
     Active Substance: MORPHINE SULFATE
     Indication: PAIN
     Dosage: 2 MG/ML, UNK
     Route: 042

REACTIONS (3)
  - Overdose [Unknown]
  - Drug dependence [Unknown]
  - Death [Fatal]

NARRATIVE: CASE EVENT DATE: 20181027
